FAERS Safety Report 15916492 (Version 1)
Quarter: 2019Q1

REPORT INFORMATION
  Report Type: Spontaneous
  Country: US (occurrence: US)
  Receive Date: 20190115
  Receipt Date: 20190115
  Transmission Date: 20190417
  Serious: No
  Sender: FDA-Public Use
  Company Number: None

PATIENT
  Age: 80 Year
  Sex: Male
  Weight: 81 kg

DRUGS (11)
  1. METOPROLOL SUCCINATE ER [Suspect]
     Active Substance: METOPROLOL SUCCINATE
     Indication: BLOOD PRESSURE MEASUREMENT
     Dosage: ?          QUANTITY:1 TABLET(S);?
     Route: 048
     Dates: start: 20181204, end: 20190112
  2. LOSARTAN. [Concomitant]
     Active Substance: LOSARTAN
  3. BRILINTA [Concomitant]
     Active Substance: TICAGRELOR
  4. ATORVASTATIN [Concomitant]
     Active Substance: ATORVASTATIN
  5. MULTIVITAMIN [Concomitant]
     Active Substance: VITAMINS
  6. MAGNESIUM [Concomitant]
     Active Substance: MAGNESIUM
  7. VITAMIN E [Concomitant]
     Active Substance: .ALPHA.-TOCOPHEROL
  8. ASPIRIN (81MG) [Concomitant]
  9. VITAMIN D [Concomitant]
     Active Substance: CHOLECALCIFEROL
  10. VITAMIN C [Concomitant]
     Active Substance: ASCORBIC ACID
  11. RANEXA [Concomitant]
     Active Substance: RANOLAZINE

REACTIONS (1)
  - Diarrhoea [None]

NARRATIVE: CASE EVENT DATE: 20181204
